FAERS Safety Report 7484827-8 (Version None)
Quarter: 2011Q2

REPORT INFORMATION
  Report Type: 
  Country: None (occurrence: None)
  Receive Date: 20110517
  Receipt Date: 20110511
  Transmission Date: 20111010
  Serious: Yes (Hospitalization, Other)
  Sender: FDA-Public Use
  Company Number: FR-ROCHE-770456

PATIENT
  Sex: Female
  Weight: 85 kg

DRUGS (6)
  1. METHOTREXATE [Concomitant]
     Route: 058
  2. PREDNISONE [Suspect]
     Indication: RHEUMATOID ARTHRITIS
     Route: 048
     Dates: start: 20080101
  3. CORTICOSTEROIDS [Concomitant]
  4. ACTEMRA [Suspect]
     Indication: RHEUMATOID ARTHRITIS
     Route: 042
     Dates: start: 20100525, end: 20110217
  5. RAMIPRIL [Suspect]
     Indication: HYPERTENSION
     Route: 065
  6. METHOTREXATE SODIUM [Suspect]
     Indication: RHEUMATOID ARTHRITIS
     Route: 058
     Dates: start: 20090101

REACTIONS (4)
  - CYTOLYTIC HEPATITIS [None]
  - SKIN NECROSIS [None]
  - ERYSIPELAS [None]
  - EAR LOBE INFECTION [None]
